FAERS Safety Report 26131929 (Version 1)
Quarter: 2025Q4

REPORT INFORMATION
  Report Type: Spontaneous
  Country: KR (occurrence: KR)
  Receive Date: 20251208
  Receipt Date: 20251208
  Transmission Date: 20260117
  Serious: Yes (Other)
  Sender: PFIZER
  Company Number: KR-PFIZER INC-PV202500142124

PATIENT
  Age: 53 Year
  Sex: Female

DRUGS (2)
  1. BAZEDOXIFENE ACETATE\ESTROGENS, CONJUGATED [Suspect]
     Active Substance: BAZEDOXIFENE ACETATE\ESTROGENS, CONJUGATED
     Dosage: 1 DF, 1X/DAY
     Dates: start: 20250428, end: 20250512
  2. MELATONIN [Suspect]
     Active Substance: MELATONIN
     Dosage: 1 DF, 1X/DAY
     Dates: start: 20250428, end: 20250512

REACTIONS (1)
  - Uterine haemorrhage [Unknown]

NARRATIVE: CASE EVENT DATE: 20250428
